FAERS Safety Report 24855916 (Version 1)
Quarter: 2025Q1

REPORT INFORMATION
  Report Type: Spontaneous
  Country: IN (occurrence: IN)
  Receive Date: 20250117
  Receipt Date: 20250117
  Transmission Date: 20250408
  Serious: Yes (Hospitalization)
  Sender: MYLAN
  Company Number: IN-MYLANLABS-2025M1002348

PATIENT
  Age: 4 Year
  Sex: Female

DRUGS (7)
  1. ACETAMINOPHEN [Suspect]
     Active Substance: ACETAMINOPHEN
     Indication: Pyrexia
     Route: 065
  2. MIDAZOLAM [Concomitant]
     Active Substance: MIDAZOLAM
     Indication: Seizure
     Route: 042
  3. CEFTRIAXONE [Concomitant]
     Active Substance: CEFTRIAXONE
     Indication: Product used for unknown indication
     Route: 065
  4. AMIKACIN [Concomitant]
     Active Substance: AMIKACIN
     Indication: Product used for unknown indication
     Route: 065
  5. DOXYCYCLINE [Concomitant]
     Active Substance: DOXYCYCLINE
     Indication: Product used for unknown indication
     Route: 065
  6. FOSPHENYTOIN [Concomitant]
     Active Substance: FOSPHENYTOIN
     Indication: Seizure
     Route: 065
  7. CLONAZEPAM [Concomitant]
     Active Substance: CLONAZEPAM
     Indication: Seizure
     Route: 065

REACTIONS (1)
  - Therapy non-responder [Unknown]
